FAERS Safety Report 24288594 (Version 1)
Quarter: 2024Q3

REPORT INFORMATION
  Report Type: Report from Study
  Country: US (occurrence: US)
  Receive Date: 20240906
  Receipt Date: 20240906
  Transmission Date: 20241017
  Serious: Yes (Other)
  Sender: ABBVIE
  Company Number: US-ABBVIE-5907755

PATIENT
  Sex: Male

DRUGS (1)
  1. RINVOQ [Suspect]
     Active Substance: UPADACITINIB
     Indication: Psoriatic arthropathy
     Dosage: LAST ADMIN DATE: 05 AUG 2024
     Route: 048
     Dates: start: 202309

REACTIONS (2)
  - Deafness [Not Recovered/Not Resolved]
  - Arthritis [Not Recovered/Not Resolved]
